FAERS Safety Report 6415129-6 (Version None)
Quarter: 2009Q4

REPORT INFORMATION
  Report Type: 
  Country: None (occurrence: None)
  Receive Date: 20091027
  Receipt Date: 20091020
  Transmission Date: 20100525
  Serious: Yes (Hospitalization)
  Sender: FDA-Public Use
  Company Number: US-BIOGENIDEC-2009BI029719

PATIENT
  Age: 55 Year
  Sex: Male

DRUGS (16)
  1. TYSABRI [Suspect]
     Indication: MULTIPLE SCLEROSIS
     Route: 042
     Dates: start: 20061013
  2. BACLOFEN [Concomitant]
  3. ATIVAN [Concomitant]
  4. MORPHINE [Concomitant]
  5. MORPHINE [Concomitant]
  6. PERCOCET [Concomitant]
  7. VOLTAREN [Concomitant]
  8. ZOCOR [Concomitant]
  9. ZOCOR [Concomitant]
  10. SYNTHROID [Concomitant]
  11. ALLEGRA [Concomitant]
  12. EFFEXOR [Concomitant]
  13. DILANTIN [Concomitant]
  14. NEURONTIN [Concomitant]
  15. ASPIRIN [Concomitant]
  16. METHOCARBAMOL [Concomitant]

REACTIONS (2)
  - MULTIPLE SCLEROSIS RELAPSE [None]
  - OVERDOSE [None]
